FAERS Safety Report 24330240 (Version 1)
Quarter: 2024Q3

REPORT INFORMATION
  Report Type: Report from Study
  Country: US (occurrence: US)
  Receive Date: 20240918
  Receipt Date: 20240918
  Transmission Date: 20241017
  Serious: No
  Sender: SANDOZ
  Company Number: US-SANDOZ-SDZ2024US080387

PATIENT
  Sex: Male

DRUGS (2)
  1. OMNITROPE [Suspect]
     Active Substance: SOMATROPIN
     Indication: Product used for unknown indication
     Dosage: 15 MG/1.5 ML 1.8 MG
     Route: 058
     Dates: start: 20240912
  2. OMNITROPE [Suspect]
     Active Substance: SOMATROPIN
     Indication: Product used for unknown indication
     Dosage: 15 MG/1.5 ML 1.8 MG
     Route: 058
     Dates: start: 20240912

REACTIONS (1)
  - Injection site discharge [Unknown]
